FAERS Safety Report 8474900-X (Version None)
Quarter: 2012Q2

REPORT INFORMATION
  Report Type: 
  Country: None (occurrence: None)
  Receive Date: 20120628
  Receipt Date: 20120621
  Transmission Date: 20120825
  Serious: Yes (Hospitalization, Other)
  Sender: FDA-Public Use
  Company Number: US-GENZYME-CLOF-1002167

PATIENT
  Sex: Male
  Weight: 74.8 kg

DRUGS (19)
  1. CYTARABINE [Suspect]
     Indication: ACUTE MYELOID LEUKAEMIA
     Dosage: 3820 MG, QD FOR INDUCTION TREATMENT, FOR 5 DAYS
     Route: 065
     Dates: start: 20120316, end: 20120320
  2. NICOTINE [Concomitant]
     Indication: EX-TOBACCO USER
     Dosage: 14 MG, PATCH
     Route: 062
     Dates: start: 20120313
  3. DOCUSATE [Concomitant]
     Indication: CONSTIPATION
     Dosage: 200 MG, UNK
     Route: 048
     Dates: start: 20120314
  4. LORAZEPAM [Concomitant]
     Indication: ANXIETY
     Dosage: 0.5 MG, UNK
     Route: 048
     Dates: start: 20120313
  5. HYDROCODONE BITARTRATE AND ACETAMINOPHEN [Concomitant]
     Indication: PAIN
     Dosage: 1 DF, UNK
     Route: 048
     Dates: start: 20120313
  6. ONDANSETRON (ZOFRAN) [Concomitant]
     Indication: NAUSEA
     Dosage: 8 MG, UNK
     Route: 048
     Dates: start: 20120313
  7. OMEPRAZOLE [Concomitant]
     Indication: DYSPEPSIA
     Dosage: 20 MG, UNK
     Route: 048
     Dates: start: 20120320
  8. CYTARABINE [Suspect]
     Dosage: 3600 MG, QD, FOR  4 DAYS
     Route: 065
     Dates: start: 20120428, end: 20120501
  9. NEUPOGEN [Suspect]
     Indication: ACUTE MYELOID LEUKAEMIA
     Dosage: 300 MCG, QD
     Route: 065
     Dates: start: 20120315, end: 20120404
  10. LORAZEPAM [Concomitant]
     Indication: NAUSEA
  11. CLOLAR [Suspect]
     Dosage: 57.3 MG, QD, FOR 5 DAYS
     Route: 042
     Dates: start: 20120316, end: 20120320
  12. ZOLPIDEM [Concomitant]
     Indication: INSOMNIA
     Dosage: 5 MG, UNK
     Route: 048
     Dates: start: 20120314
  13. ACYCLOVIR [Concomitant]
     Indication: ANTIVIRAL TREATMENT
     Dosage: 400 MG, UNK
     Route: 048
     Dates: start: 20120314
  14. SENNA-MINT WAF [Concomitant]
     Indication: CONSTIPATION
     Dosage: 2 DF, UNK
     Route: 048
     Dates: start: 20120313
  15. NEUPOGEN [Suspect]
     Dosage: 300 MCG, QD
     Route: 065
     Dates: start: 20120428, end: 20120501
  16. OXYCODONE HCL [Concomitant]
     Indication: PAIN
     Dosage: 5 MG, PRN
     Route: 048
     Dates: start: 20120313
  17. LEVAQUIN [Concomitant]
     Indication: ANTIBIOTIC PROPHYLAXIS
     Dosage: 750 MG, UNK
     Route: 048
     Dates: start: 20120502
  18. VORICONAZOLE [Concomitant]
     Indication: ANTIBIOTIC PROPHYLAXIS
     Dosage: 200 MG, BID
     Route: 048
     Dates: start: 20120402
  19. CLOLAR [Suspect]
     Indication: ACUTE MYELOID LEUKAEMIA
     Dosage: 46 MG, QD FOR CONSOLIDATION TREATMENT
     Route: 042
     Dates: start: 20120428

REACTIONS (4)
  - OEDEMA PERIPHERAL [None]
  - FEBRILE NEUTROPENIA [None]
  - ENTEROVESICAL FISTULA [None]
  - ABSCESS [None]
